FAERS Safety Report 5934910-0 (Version None)
Quarter: 2008Q4

REPORT INFORMATION
  Report Type: 
  Country: None (occurrence: None)
  Receive Date: 20081027
  Receipt Date: 20081015
  Transmission Date: 20090506
  Serious: Yes (Other)
  Sender: FDA-Public Use
  Company Number: 2008SP019844

PATIENT
  Age: 65 Year
  Sex: Female
  Weight: 117.9352 kg

DRUGS (4)
  1. CLARINEX [Suspect]
     Indication: SINUSITIS
     Dosage: 5 MG;QD;PO
     Route: 048
  2. CLARINEX [Suspect]
     Indication: DRUG USE FOR UNKNOWN INDICATION
     Dosage: PO
     Route: 048
  3. DIOVAN [Suspect]
     Indication: DRUG USE FOR UNKNOWN INDICATION
  4. NEXIUM [Suspect]
     Indication: DRUG USE FOR UNKNOWN INDICATION

REACTIONS (3)
  - DELUSION [None]
  - HALLUCINATION [None]
  - SOMNAMBULISM [None]
